FAERS Safety Report 25362133 (Version 1)
Quarter: 2025Q2

REPORT INFORMATION
  Report Type: Spontaneous
  Country: ES (occurrence: ES)
  Receive Date: 20250527
  Receipt Date: 20250527
  Transmission Date: 20250716
  Serious: Yes (Other)
  Sender: AMGEN
  Company Number: ES-AMGEN-ESPSP2025102081

PATIENT

DRUGS (5)
  1. XGEVA [Suspect]
     Active Substance: DENOSUMAB
     Indication: Bone giant cell tumour
     Dosage: 120 MILLIGRAM, QMO
     Route: 058
  2. XGEVA [Suspect]
     Active Substance: DENOSUMAB
     Route: 058
  3. XGEVA [Suspect]
     Active Substance: DENOSUMAB
     Route: 058
  4. CALCIUM [Concomitant]
     Active Substance: CALCIUM
     Indication: Prophylaxis
  5. VITAMIN D [Concomitant]
     Active Substance: VITAMIN D NOS
     Indication: Prophylaxis

REACTIONS (1)
  - Bone giant cell tumour [Unknown]
